FAERS Safety Report 8836036 (Version 1)
Quarter: 2012Q4

REPORT INFORMATION
  Report Type: 
  Country: US (occurrence: US)
  Receive Date: 20121011
  Receipt Date: 20121011
  Transmission Date: 20130627
  Serious: Yes (Life-Threatening, Hospitalization)
  Sender: FDA-Public Use
  Company Number: US-MERCK-1103USA02013

PATIENT
  Age: 2 Year
  Sex: Female
  Weight: 13.2 kg

DRUGS (13)
  1. VORINOSTAT [Suspect]
     Indication: MEDULLOBLASTOMA
     Dosage: 230 mg/m2, on days 1-4
     Route: 048
     Dates: start: 20091013, end: 20091016
  2. VORINOSTAT [Suspect]
     Dosage: 180 mg/m2 on days 1,3,5,6,8,10,12 and 13
     Route: 048
     Dates: start: 20110210, end: 20120222
  3. ISOTRETINOIN [Suspect]
     Indication: MEDULLOBLASTOMA
     Dosage: 80 mg/m2, on days 1-4
     Route: 048
     Dates: start: 20091013, end: 20091016
  4. ISOTRETINOIN [Suspect]
     Dosage: 80 mg/m2/ dose on days 1-14
     Route: 048
     Dates: start: 20110210, end: 20110223
  5. VINCRISTINE [Suspect]
     Indication: MEDULLOBLASTOMA
     Dosage: 0.05 mg/kg/day on days 4,11 and 18
     Route: 042
     Dates: start: 20091016, end: 20091030
  6. CISPLATIN [Suspect]
     Indication: MEDULLOBLASTOMA
     Dosage: 3.5 mg/kg/day over 6 hrs on day 4
     Dates: start: 20091016, end: 20091016
  7. CYCLOPHOSPHAMIDE [Suspect]
     Indication: MEDULLOBLASTOMA
     Dosage: 60 mg/kg/day over 1 hr on days 5 and 6 (delayed one day)
     Route: 042
     Dates: start: 20091017, end: 20091017
  8. CYCLOPHOSPHAMIDE [Suspect]
     Dosage: 60 mg/kg/day over 1 hr on days 5 and 6 (delayed one day)
     Route: 042
     Dates: start: 20091019, end: 20091019
  9. ETOPOSIDE [Suspect]
     Indication: MEDULLOBLASTOMA
     Dosage: 2.5 mg/m2/day over 1 hr on days 4, 5 and 6
     Route: 042
     Dates: start: 20091016, end: 20091016
  10. ETOPOSIDE [Suspect]
     Dosage: 2.5 mg/m2/day over 1 hr on days 4, 5 and 6 ( second dose delayed one day)
     Route: 042
     Dates: start: 20091018, end: 20091018
  11. ETOPOSIDE [Suspect]
     Dosage: 2.5 mg/m2/day over 1 hr on days 4, 5 and 6
     Route: 042
     Dates: start: 20091019, end: 20091019
  12. MESNA [Suspect]
     Dosage: UNK
     Dates: end: 20091019
  13. GRANULOCYTE COLONY STIMULATING FACTOR (UNSPECIFIED) [Suspect]
     Dosage: UNK
     Dates: end: 20091028

REACTIONS (6)
  - Dehydration [Recovered/Resolved]
  - Neutrophil count decreased [Recovered/Resolved]
  - Platelet count decreased [Recovered/Resolved]
  - White blood cell count decreased [Recovered/Resolved]
  - Stomatitis [Recovered/Resolved]
  - Influenza [Recovered/Resolved]
